FAERS Safety Report 18791017 (Version 2)
Quarter: 2021Q1

REPORT INFORMATION
  Report Type: Report from Study
  Country: US (occurrence: US)
  Receive Date: 20210126
  Receipt Date: 20210331
  Transmission Date: 20210419
  Serious: Yes (Hospitalization, Other)
  Sender: FDA-Public Use
  Company Number: US-TAKEDA-2021TUS005199

PATIENT
  Sex: Female

DRUGS (8)
  1. TEDUGLUTIDE [Suspect]
     Active Substance: TEDUGLUTIDE
     Indication: SHORT-BOWEL SYNDROME
     Dosage: 5.9 MILLIGRAM, QD
     Route: 058
     Dates: start: 20200519
  2. TEDUGLUTIDE [Suspect]
     Active Substance: TEDUGLUTIDE
     Indication: SHORT-BOWEL SYNDROME
     Dosage: 5.9 MILLIGRAM, QD
     Route: 058
     Dates: start: 20200519
  3. TEDUGLUTIDE [Suspect]
     Active Substance: TEDUGLUTIDE
     Indication: SHORT-BOWEL SYNDROME
     Dosage: 5.9 MILLIGRAM, QD
     Route: 058
     Dates: start: 20200505
  4. TEDUGLUTIDE [Suspect]
     Active Substance: TEDUGLUTIDE
     Indication: SHORT-BOWEL SYNDROME
     Dosage: 5.9 MILLIGRAM, QD
     Route: 058
     Dates: start: 20200519
  5. TEDUGLUTIDE [Suspect]
     Active Substance: TEDUGLUTIDE
     Indication: SHORT-BOWEL SYNDROME
     Dosage: 5.9 MILLIGRAM, QD
     Route: 058
     Dates: start: 20200505
  6. TEDUGLUTIDE [Suspect]
     Active Substance: TEDUGLUTIDE
     Indication: SHORT-BOWEL SYNDROME
     Dosage: 5.9 MILLIGRAM, QD
     Route: 058
     Dates: start: 20200505
  7. TEDUGLUTIDE [Suspect]
     Active Substance: TEDUGLUTIDE
     Indication: SHORT-BOWEL SYNDROME
     Dosage: 5.9 MILLIGRAM, QD
     Route: 058
     Dates: start: 20200505
  8. TEDUGLUTIDE [Suspect]
     Active Substance: TEDUGLUTIDE
     Indication: SHORT-BOWEL SYNDROME
     Dosage: 5.9 MILLIGRAM, QD
     Route: 058
     Dates: start: 20200519

REACTIONS (4)
  - Pyrexia [Unknown]
  - Vascular device infection [Unknown]
  - Product dose omission issue [Unknown]
  - Hospitalisation [Unknown]
